FAERS Safety Report 12947747 (Version 1)
Quarter: 2016Q4

REPORT INFORMATION
  Report Type: Spontaneous
  Country: SE (occurrence: SE)
  Receive Date: 20161117
  Receipt Date: 20161117
  Transmission Date: 20170207
  Serious: Yes (Other)
  Sender: FDA-Public Use
  Company Number: SE-ASTRAZENECA-2016SF21065

PATIENT
  Age: 64 Year
  Sex: Female

DRUGS (13)
  1. ATORVASTATIN [Concomitant]
     Active Substance: ATORVASTATIN
  2. TROMBYL [Concomitant]
     Active Substance: ASPIRIN
  3. CANDESARTAN [Concomitant]
     Active Substance: CANDESARTAN
  4. NEXIUM HP [Suspect]
     Active Substance: AMOXICILLIN\CLARITHROMYCIN\ESOMEPRAZOLE
     Indication: GASTRIC ULCER
     Route: 048
  5. AMOXICILLIN. [Suspect]
     Active Substance: AMOXICILLIN
     Indication: GASTRIC ULCER
     Route: 065
     Dates: start: 20160922, end: 20160929
  6. CLARITHROMYCIN. [Suspect]
     Active Substance: CLARITHROMYCIN
     Indication: GASTRIC ULCER
     Route: 065
     Dates: start: 20160922, end: 20160929
  7. KALCIPOS [Concomitant]
     Active Substance: CALCIUM CARBONATE
  8. CLARITHROMYCIN. [Suspect]
     Active Substance: CLARITHROMYCIN
     Indication: GASTRIC ULCER
     Route: 065
  9. METHOTREXATE. [Concomitant]
     Active Substance: METHOTREXATE
  10. NEXIUM HP [Suspect]
     Active Substance: AMOXICILLIN\CLARITHROMYCIN\ESOMEPRAZOLE
     Indication: GASTRIC ULCER
     Route: 048
     Dates: start: 20160922, end: 20160929
  11. OMEPRAZOL [Suspect]
     Active Substance: OMEPRAZOLE
     Indication: GASTRIC ULCER
     Route: 048
     Dates: start: 20160930, end: 20161031
  12. AMOXICILLIN. [Suspect]
     Active Substance: AMOXICILLIN
     Indication: GASTRIC ULCER
     Route: 065
  13. PREDNISOLONE. [Concomitant]
     Active Substance: PREDNISOLONE

REACTIONS (4)
  - Dysphonia [Not Recovered/Not Resolved]
  - Wheezing [Not Recovered/Not Resolved]
  - Lip ulceration [Not Recovered/Not Resolved]
  - Lip swelling [Not Recovered/Not Resolved]

NARRATIVE: CASE EVENT DATE: 201609
